FAERS Safety Report 9257153 (Version 2)
Quarter: 2013Q3

REPORT INFORMATION
  Report Type: Report from Study
  Country: JP (occurrence: JP)
  Receive Date: 20130426
  Receipt Date: 20130910
  Transmission Date: 20140515
  Serious: Yes (Death, Life-Threatening, Hospitalization, Disabling, Other)
  Sender: FDA-Public Use
  Company Number: JP-GENZYME-THYM-1003763

PATIENT
  Age: 20 Year
  Sex: Male
  Weight: 56 kg

DRUGS (11)
  1. THYMOGLOBULIN [Suspect]
     Indication: BONE MARROW CONDITIONING REGIMEN
     Dosage: 75 MG, QD
     Route: 065
     Dates: start: 20120427, end: 20120428
  2. FLUDARABINE PHOSPHATE [Concomitant]
     Indication: BONE MARROW CONDITIONING REGIMEN
     Dosage: UNK
     Route: 065
     Dates: start: 20120425, end: 20120429
  3. MICAFUNGIN SODIUM [Concomitant]
     Indication: INFECTION PROPHYLAXIS
     Dosage: UNK
     Route: 065
     Dates: start: 20120227, end: 20120714
  4. FILGRASTIM [Concomitant]
     Indication: NEUTROPHIL COUNT ABNORMAL
     Dosage: UNK
     Route: 065
     Dates: start: 20120509, end: 20120525
  5. ACICLOVIR [Concomitant]
     Indication: INFECTION PROPHYLAXIS
     Dosage: UNK
     Route: 065
     Dates: start: 20120426, end: 20120705
  6. URSODEOXYCHOLIC ACID [Concomitant]
     Indication: PROPHYLAXIS
     Dosage: UNK
     Route: 065
     Dates: start: 20120229, end: 20120627
  7. CICLOSPORIN [Concomitant]
     Indication: PROPHYLAXIS AGAINST GRAFT VERSUS HOST DISEASE
     Dosage: UNK
     Route: 065
     Dates: start: 20120430, end: 20120630
  8. ETOPOSIDE [Concomitant]
     Indication: BONE MARROW CONDITIONING REGIMEN
     Dosage: UNK
     Route: 065
     Dates: start: 20120424, end: 20120426
  9. FAMOTIDINE [Concomitant]
     Indication: PROPHYLAXIS AGAINST GASTROINTESTINAL ULCER
     Dosage: UNK
     Route: 065
     Dates: start: 20120521, end: 20120608
  10. SULFAMETHOPRIM [Concomitant]
     Indication: ANTIFUNGAL PROPHYLAXIS
     Dosage: UNK
     Route: 065
     Dates: start: 20120524, end: 20120627
  11. METHOTREXATE [Concomitant]
     Indication: PROPHYLAXIS AGAINST GRAFT VERSUS HOST DISEASE
     Dosage: UNK
     Route: 065
     Dates: start: 20120503, end: 20120513

REACTIONS (13)
  - Anaemia [Not Recovered/Not Resolved]
  - Streptococcal sepsis [Fatal]
  - Pyrexia [Recovered/Resolved]
  - Thrombotic microangiopathy [Fatal]
  - Disseminated intravascular coagulation [Fatal]
  - Hypoalbuminaemia [Not Recovered/Not Resolved]
  - Cystitis haemorrhagic [Not Recovered/Not Resolved]
  - Febrile neutropenia [Recovered/Resolved]
  - Acute graft versus host disease in skin [Recovered/Resolved]
  - Epstein-Barr virus infection [Fatal]
  - Platelet count decreased [Not Recovered/Not Resolved]
  - Pyrexia [Not Recovered/Not Resolved]
  - Cytomegalovirus infection [Recovered/Resolved]
